FAERS Safety Report 18306829 (Version 1)
Quarter: 2020Q3

REPORT INFORMATION
  Report Type: Spontaneous
  Country: US (occurrence: US)
  Receive Date: 20200924
  Receipt Date: 20200924
  Transmission Date: 20201103
  Serious: Yes (Other)
  Sender: FDA-Public Use
  Company Number: None

PATIENT
  Age: 64 Year
  Sex: Male
  Weight: 101.3 kg

DRUGS (1)
  1. REMDESIVIR. [Suspect]
     Active Substance: REMDESIVIR
     Indication: COVID-19 PNEUMONIA
     Route: 040
     Dates: start: 20200812, end: 20200816

REACTIONS (1)
  - Transaminases increased [None]

NARRATIVE: CASE EVENT DATE: 20200813
